FAERS Safety Report 4747774-8 (Version None)
Quarter: 2005Q3

REPORT INFORMATION
  Report Type: 
  Country: None (occurrence: None)
  Receive Date: 20050817
  Receipt Date: 20050817
  Transmission Date: 20060218
  Serious: No
  Sender: FDA-Public Use
  Company Number: None

PATIENT
  Age: 42 Year
  Sex: Male
  Weight: 141 kg

DRUGS (1)
  1. INTEGRILIN [Suspect]
     Dosage: TAPER INTRAVENOUS
     Route: 042
     Dates: start: 20050603, end: 20050603

REACTIONS (2)
  - EPISTAXIS [None]
  - PROCEDURAL COMPLICATION [None]
